FAERS Safety Report 4576268-8 (Version None)
Quarter: 2005Q1

REPORT INFORMATION
  Report Type: 
  Country: None (occurrence: None)
  Receive Date: 20050207
  Receipt Date: 20041227
  Transmission Date: 20050727
  Serious: Yes (Hospitalization, Other)
  Sender: FDA-Public Use
  Company Number: 15936-1

PATIENT
  Age: 65 Year
  Sex: Male
  Weight: 163 kg

DRUGS (1)
  1. LEUCOVORIN CALCIUM [Suspect]
     Indication: COLON CANCER
     Dosage: 380MG
     Dates: start: 20041123

REACTIONS (2)
  - BLOOD CREATININE INCREASED [None]
  - PROTHROMBIN TIME PROLONGED [None]
